FAERS Safety Report 6173450-3 (Version None)
Quarter: 2009Q2

REPORT INFORMATION
  Report Type: 
  Country: None (occurrence: None)
  Receive Date: 20090430
  Receipt Date: 20090421
  Transmission Date: 20091009
  Serious: Yes (Hospitalization)
  Sender: FDA-Public Use
  Company Number: SE-WATSON-2009-02767

PATIENT
  Age: 32 Year
  Sex: Male

DRUGS (1)
  1. MONODOX [Suspect]
     Indication: PNEUMONIA
     Dosage: 200 MG, DAILY
     Route: 048
     Dates: start: 19970101

REACTIONS (4)
  - CHOLESTASIS [None]
  - DRUG HYPERSENSITIVITY [None]
  - HEPATOCELLULAR INJURY [None]
  - RASH [None]
